FAERS Safety Report 14114897 (Version 1)
Quarter: 2017Q4

REPORT INFORMATION
  Report Type: Spontaneous
  Country: DE (occurrence: DE)
  Receive Date: 20171023
  Receipt Date: 20171023
  Transmission Date: 20180321
  Serious: Yes (Life-Threatening, Hospitalization, Other)
  Sender: FDA-Public Use
  Company Number: DE-009507513-1710DEU008011

PATIENT
  Age: 36 Year
  Sex: Female

DRUGS (6)
  1. URAPIDIL [Concomitant]
     Active Substance: URAPIDIL
     Indication: HYPERTENSION
  2. METHYLDOPA. [Concomitant]
     Active Substance: METHYLDOPA
     Indication: HYPERTENSION
     Route: 048
  3. RAMIPRIL. [Concomitant]
     Active Substance: RAMIPRIL
     Indication: HYPERTENSION
  4. NIFEDIPINE. [Concomitant]
     Active Substance: NIFEDIPINE
     Indication: HYPERTENSION
     Route: 048
  5. CELESTAMINE N [Suspect]
     Active Substance: BETAMETHASONE
     Indication: PROPHYLAXIS
     Route: 048
  6. DIHYDRALAZINE MESYLATE [Concomitant]
     Active Substance: DIHYDRALAZINE MESYLATE
     Indication: HYPERTENSION

REACTIONS (3)
  - Maternal exposure during delivery [Recovered/Resolved]
  - Hypertensive crisis [Recovered/Resolved]
  - Cushing^s syndrome [Recovered/Resolved]
